FAERS Safety Report 9836597 (Version 2)
Quarter: 2014Q1

REPORT INFORMATION
  Report Type: Spontaneous
  Country: IT (occurrence: IT)
  Receive Date: 20140123
  Receipt Date: 20140218
  Transmission Date: 20141002
  Serious: Yes (Other)
  Sender: FDA-Public Use
  Company Number: IT-JNJFOC-20140108187

PATIENT
  Age: 50 Year
  Sex: Male

DRUGS (2)
  1. DOXORUBICIN HYDROCHLORIDE [Suspect]
     Indication: RENAL NEOPLASM
     Route: 042
  2. IFOSFAMIDE [Suspect]
     Indication: RENAL NEOPLASM
     Dosage: ON DAY 1 THROUGH 3 EVERY 21 DAYS
     Route: 065
     Dates: start: 200805, end: 200810

REACTIONS (4)
  - Renin increased [Unknown]
  - Hyponatraemia [Unknown]
  - Neoplasm recurrence [Unknown]
  - Off label use [Unknown]
